FAERS Safety Report 10405876 (Version 8)
Quarter: 2015Q2

REPORT INFORMATION
  Report Type: Spontaneous
  Country: US (occurrence: US)
  Receive Date: 20140825
  Receipt Date: 20150430
  Transmission Date: 20150821
  Serious: Yes (Hospitalization, Disabling, Other)
  Sender: FDA-Public Use
  Company Number: US-MERCK-1408USA013456

PATIENT
  Sex: Male
  Weight: 81.63 kg

DRUGS (5)
  1. JANUVIA [Suspect]
     Active Substance: SITAGLIPTIN PHOSPHATE
     Dosage: 100 MG, UNK
     Route: 048
     Dates: start: 20100425
  2. JANUVIA [Suspect]
     Active Substance: SITAGLIPTIN PHOSPHATE
     Dosage: 50 MG, UNK
     Route: 048
     Dates: start: 20080528, end: 20081226
  3. VICTOZA [Suspect]
     Active Substance: LIRAGLUTIDE
     Indication: TYPE 2 DIABETES MELLITUS
     Dosage: 0.6-1.8 MG, QD
     Dates: start: 20120118, end: 20130201
  4. BYETTA [Suspect]
     Active Substance: EXENATIDE
     Indication: TYPE 2 DIABETES MELLITUS
     Dosage: 5 MICROGRAM, BID
     Dates: start: 20060731, end: 20060911
  5. JANUVIA [Suspect]
     Active Substance: SITAGLIPTIN PHOSPHATE
     Indication: TYPE 2 DIABETES MELLITUS
     Dosage: 50 MG, QD
     Route: 048
     Dates: start: 20041212, end: 20080218

REACTIONS (43)
  - Pancreatic mass [Unknown]
  - Eructation [Unknown]
  - Osteoarthritis [Unknown]
  - Depression [Unknown]
  - Nervousness [Unknown]
  - Constipation [Unknown]
  - Abdominal pain [Unknown]
  - Lobar pneumonia [Unknown]
  - Tachycardia [Unknown]
  - Neuropathy peripheral [Unknown]
  - Post procedural complication [Unknown]
  - Weight increased [Unknown]
  - Back pain [Not Recovered/Not Resolved]
  - Splenectomy [Unknown]
  - Spinal laminectomy [Unknown]
  - Deep vein thrombosis [Unknown]
  - Plantar fasciitis [Unknown]
  - Diabetes mellitus inadequate control [Unknown]
  - Dehydration [Recovering/Resolving]
  - Viral infection [Unknown]
  - Lumbar radiculopathy [Unknown]
  - Myalgia [Unknown]
  - Drug ineffective [Unknown]
  - Naevus haemorrhage [Unknown]
  - Herpes simplex [Unknown]
  - Nodule [Unknown]
  - Pancreatic carcinoma [Unknown]
  - Coronary artery bypass [Unknown]
  - Surgery [Unknown]
  - Palpitations [Unknown]
  - Restlessness [Unknown]
  - Neuralgia [Unknown]
  - Decreased appetite [Unknown]
  - Arteriosclerosis coronary artery [Unknown]
  - Insomnia [Unknown]
  - Osteoarthritis [Unknown]
  - Abdominal discomfort [Unknown]
  - Pancreatectomy [Unknown]
  - Back injury [Not Recovered/Not Resolved]
  - Spinal disorder [Unknown]
  - Tendon disorder [Unknown]
  - Foot deformity [Unknown]
  - Arthropathy [Unknown]

NARRATIVE: CASE EVENT DATE: 200606
